FAERS Safety Report 11061586 (Version 1)
Quarter: 2015Q2

REPORT INFORMATION
  Report Type: Spontaneous
  Country: US (occurrence: US)
  Receive Date: 20150424
  Receipt Date: 20150424
  Transmission Date: 20150821
  Serious: No
  Sender: FDA-Public Use
  Company Number: US-BAYER-2015-160138

PATIENT
  Age: 47 Year
  Sex: Female

DRUGS (1)
  1. SKYLA [Suspect]
     Active Substance: LEVONORGESTREL
     Indication: MENSTRUAL CYCLE MANAGEMENT
     Dosage: 14 MCG/24HR, CONT
     Route: 015
     Dates: start: 20150417

REACTIONS (1)
  - Off label use [None]

NARRATIVE: CASE EVENT DATE: 20150417
